FAERS Safety Report 6889574-9 (Version None)
Quarter: 2010Q3

REPORT INFORMATION
  Report Type: 
  Country: None (occurrence: None)
  Receive Date: 20100730
  Receipt Date: 20080313
  Transmission Date: 20110219
  Serious: No
  Sender: FDA-Public Use
  Company Number: US-PFIZER INC-2008023654

PATIENT
  Sex: Female
  Weight: 72.727 kg

DRUGS (6)
  1. LIPITOR [Suspect]
     Indication: BLOOD CHOLESTEROL INCREASED
     Dates: start: 20070101
  2. LAMICTAL [Concomitant]
     Indication: CONVULSION
  3. ZOLOFT [Concomitant]
  4. ATIVAN [Concomitant]
  5. COZAAR [Concomitant]
  6. PENTOXIFYLLINE [Concomitant]

REACTIONS (2)
  - ALOPECIA [None]
  - MADAROSIS [None]
